FAERS Safety Report 9269735 (Version 2)
Quarter: 2013Q2

REPORT INFORMATION
  Report Type: Spontaneous
  Country: UA (occurrence: UA)
  Receive Date: 20130503
  Receipt Date: 20130503
  Transmission Date: 20140414
  Serious: Yes (Hospitalization, Other)
  Sender: FDA-Public Use
  Company Number: UA-NOVOPROD-375856

PATIENT
  Age: 53 Year
  Sex: Male
  Weight: 118 kg

DRUGS (4)
  1. ACTRAPID HM PENFILL [Suspect]
     Indication: TYPE 1 DIABETES MELLITUS
     Dosage: 44 IU, QD
     Route: 058
     Dates: start: 1999
  2. PROTAPHANE HM PENFILL [Suspect]
     Indication: TYPE 1 DIABETES MELLITUS
     Dosage: 52 IU, QD
     Route: 058
     Dates: start: 1999
  3. ATORVASTATIN [Concomitant]
     Dosage: 10 MG, QD
     Dates: start: 2002
  4. LISINOPRIL [Concomitant]
     Dosage: 20 MG, QD
     Dates: start: 2002

REACTIONS (2)
  - Encephalopathy [Unknown]
  - Hypoglycaemic unconsciousness [Recovered/Resolved]
